FAERS Safety Report 7994158-5 (Version None)
Quarter: 2011Q4

REPORT INFORMATION
  Report Type: 
  Country: None (occurrence: None)
  Receive Date: 20111220
  Receipt Date: 20111209
  Transmission Date: 20120403
  Serious: Yes (Death)
  Sender: FDA-Public Use
  Company Number: JP-AMGEN-JPNCT2011005816

PATIENT
  Age: 44 Year
  Sex: Male
  Weight: 124 kg

DRUGS (11)
  1. COSPANON [Concomitant]
     Route: 048
     Dates: start: 20101222, end: 20101228
  2. PROPADERM [Concomitant]
     Route: 062
     Dates: start: 20101218, end: 20101228
  3. DIGOXIN [Concomitant]
     Route: 048
     Dates: start: 20101215, end: 20101228
  4. URSO 250 [Concomitant]
     Route: 048
     Dates: end: 20101228
  5. VERAPAMIL HCL [Concomitant]
     Route: 048
     Dates: start: 20101215, end: 20101228
  6. LOCOID [Concomitant]
     Route: 062
     Dates: start: 20101221, end: 20101228
  7. ERYTHROCIN LACTOBIONATE [Concomitant]
     Route: 048
     Dates: start: 20101218, end: 20101228
  8. SUNRYTHM [Concomitant]
     Route: 048
     Dates: start: 20101215, end: 20101228
  9. OLMESARTAN MEDOXOMIL [Concomitant]
     Route: 048
     Dates: start: 20101215, end: 20101228
  10. PANITUMUMAB [Suspect]
     Indication: COLORECTAL CANCER
     Dosage: 700 MG, Q2WK
     Route: 041
     Dates: start: 20101209, end: 20101224
  11. ASPIRIN [Concomitant]
     Route: 048
     Dates: start: 20101215, end: 20101228

REACTIONS (1)
  - MALIGNANT ASCITES [None]
